FAERS Safety Report 22628801 (Version 1)
Quarter: 2023Q2

REPORT INFORMATION
  Report Type: Report from Study
  Country: US (occurrence: US)
  Receive Date: 20230622
  Receipt Date: 20230622
  Transmission Date: 20230722
  Serious: Yes (Hospitalization, Other)
  Sender: FDA-Public Use
  Company Number: US-OTSUKA PHARMACEUTICAL NETHERLANDS B.V.-AUR-003636

PATIENT
  Sex: Female

DRUGS (1)
  1. LUPKYNIS [Suspect]
     Active Substance: VOCLOSPORIN
     Indication: Product used for unknown indication
     Dosage: 7.9 MG EVERY MORNING AND 15.8 MG EVERY EVENING
     Route: 048
     Dates: start: 20220216

REACTIONS (3)
  - Hypervolaemia [Unknown]
  - Pneumonia [Unknown]
  - Hypertension [Unknown]
